FAERS Safety Report 5402381-9 (Version None)
Quarter: 2007Q3

REPORT INFORMATION
  Report Type: 
  Country: None (occurrence: None)
  Receive Date: 20070730
  Receipt Date: 20070730
  Transmission Date: 20080115
  Serious: Yes (Hospitalization)
  Sender: FDA-Public Use
  Company Number: None

PATIENT
  Age: 53 Year
  Sex: Male

DRUGS (2)
  1. PEG-INTRON [Suspect]
     Indication: HEPATITIS C
     Dosage: 1500MCG QWEEK SQ
     Route: 058
     Dates: start: 20070711
  2. GLYBURIDE [Suspect]
     Indication: DIABETES MELLITUS
     Dosage: 5MG BID PO
     Route: 048
     Dates: start: 20070208

REACTIONS (3)
  - HYPOGLYCAEMIA [None]
  - INADEQUATE DIET [None]
  - NAUSEA [None]
